FAERS Safety Report 5450456-0 (Version None)
Quarter: 2007Q3

REPORT INFORMATION
  Report Type: 
  Country: None (occurrence: None)
  Receive Date: 20070803
  Receipt Date: 20070510
  Transmission Date: 20080115
  Serious: No
  Sender: FDA-Public Use
  Company Number: 200712657GDS

PATIENT
  Age: 37 Year
  Sex: Female

DRUGS (2)
  1. SORAFENIB [Suspect]
     Indication: LUNG NEOPLASM MALIGNANT
     Dosage: 400 MG, BID
     Dates: start: 20060201, end: 20060401
  2. SORAFENIB [Suspect]
     Indication: METASTASES TO KIDNEY
     Dosage: 400 MG, BID
     Dates: start: 20060201, end: 20060401

REACTIONS (1)
  - DIARRHOEA [None]
